FAERS Safety Report 5535260-7 (Version None)
Quarter: 2007Q4

REPORT INFORMATION
  Report Type: 
  Country: None (occurrence: None)
  Receive Date: 20071206
  Receipt Date: 20071204
  Transmission Date: 20080405
  Serious: Yes (Hospitalization)
  Sender: FDA-Public Use
  Company Number: GB-BRISTOL-MYERS SQUIBB COMPANY-14003636

PATIENT
  Age: 51 Year
  Sex: Female
  Weight: 102 kg

DRUGS (3)
  1. PACLITAXEL [Suspect]
     Indication: BREAST CANCER
     Dates: start: 20071101, end: 20071101
  2. GEMCITABINE [Suspect]
     Indication: BREAST CANCER
     Dates: start: 20071101, end: 20071101
  3. AUGMENTIN [Concomitant]
     Indication: INFECTION
     Dosage: 625 MG FROM 12-NOV-2007 TO 15-NOV-2007
     Route: 042
     Dates: start: 20071108, end: 20071112

REACTIONS (2)
  - COUGH [None]
  - INFECTION [None]
